FAERS Safety Report 8810637 (Version 1)
Quarter: 2012Q4

REPORT INFORMATION
  Report Type: Spontaneous
  Country: US (occurrence: None)
  Receive Date: 20120924
  Receipt Date: 20120924
  Transmission Date: 20130627
  Serious: Yes (Other)
  Sender: FDA-Public Use
  Company Number: None

PATIENT
  Sex: Female
  Weight: 50.8 kg

DRUGS (2)
  1. KEFLEX [Suspect]
     Indication: DENTAL DISORDER NOS
     Route: 048
     Dates: start: 201208
  2. KEFLEX [Suspect]
     Indication: INFECTION
     Route: 048
     Dates: start: 201208

REACTIONS (4)
  - Dizziness [None]
  - Headache [None]
  - Fall [None]
  - Balance disorder [None]
